FAERS Safety Report 5064000-3 (Version None)
Quarter: 2006Q3

REPORT INFORMATION
  Report Type: 
  Country: None (occurrence: None)
  Receive Date: 20060703
  Receipt Date: 20060517
  Transmission Date: 20061208
  Serious: Yes (Other)
  Sender: FDA-Public Use
  Company Number: 145811USA

PATIENT
  Sex: Male

DRUGS (1)
  1. CIPROFLOXACIN [Suspect]
     Indication: INGROWING NAIL
     Dates: start: 20050512, end: 20050501

REACTIONS (3)
  - AGGRESSION [None]
  - MENTAL STATUS CHANGES [None]
  - PSYCHOTIC DISORDER [None]
